FAERS Safety Report 7619618-8 (Version None)
Quarter: 2011Q3

REPORT INFORMATION
  Report Type: 
  Country: None (occurrence: None)
  Receive Date: 20110719
  Receipt Date: 20091108
  Transmission Date: 20111222
  Serious: Yes (Hospitalization, Other)
  Sender: FDA-Public Use
  Company Number: US-BAYER-200938823NA

PATIENT
  Age: 73 Year
  Sex: Female
  Weight: 68 kg

DRUGS (14)
  1. HEPARIN [Concomitant]
     Dosage: 20
     Route: 042
  2. TRASYLOL [Suspect]
     Indication: PRODUCT USED FOR UNKNOWN INDICATION
     Dosage: 200 ML, PUMP PRIME
     Route: 042
     Dates: start: 20040902, end: 20040902
  3. DILTIAZEM [Concomitant]
  4. ANCEF [Concomitant]
     Dosage: 2 G, UNK
     Route: 042
  5. TORADOL [Concomitant]
     Dosage: 30 MG, UNK
     Route: 042
  6. TRASYLOL [Suspect]
     Indication: COX-MAZE PROCEDURE
     Dosage: 50ML/HR, INFUSION RATE
     Dates: start: 20040902, end: 20040902
  7. ACETYLSALICYLIC ACID SRT [Concomitant]
     Dosage: 81 MG, UNK
     Route: 048
  8. LASIX [Concomitant]
     Dosage: DAILY
  9. ALTACE [Concomitant]
     Dosage: 10 MG, UNK
     Route: 048
  10. LOPRESSOR [Concomitant]
     Dosage: EVERY 4 HRS
     Route: 042
     Dates: start: 20040828
  11. AMIODARONE HCL [Concomitant]
     Dosage: 150 MG, UNK
     Route: 042
  12. PROTAMINE SULFATE [Concomitant]
     Route: 042
  13. VERSED [Concomitant]
     Dosage: 2 MG, UNK
     Route: 042
  14. RYTHMOL [Concomitant]
     Dosage: 225 MG, TID
     Route: 048

REACTIONS (9)
  - EMOTIONAL DISTRESS [None]
  - STRESS [None]
  - PAIN [None]
  - ANHEDONIA [None]
  - ANXIETY [None]
  - UNEVALUABLE EVENT [None]
  - FEAR [None]
  - CEREBROVASCULAR ACCIDENT [None]
  - INJURY [None]
